FAERS Safety Report 5306911-7 (Version None)
Quarter: 2007Q2

REPORT INFORMATION
  Report Type: 
  Country: None (occurrence: None)
  Receive Date: 20070425
  Receipt Date: 20070423
  Transmission Date: 20071010
  Serious: Yes (Hospitalization)
  Sender: FDA-Public Use
  Company Number: US-BRISTOL-MYERS SQUIBB COMPANY-13757430

PATIENT
  Age: 60 Year
  Sex: Female

DRUGS (16)
  1. CYTOXAN [Suspect]
     Indication: BREAST CANCER
     Route: 042
     Dates: start: 20070205, end: 20070205
  2. ADRIAMYCIN PFS [Suspect]
     Indication: BREAST CANCER
     Route: 042
     Dates: start: 20070205, end: 20070205
  3. NEULASTA [Suspect]
     Indication: BREAST CANCER
     Route: 042
     Dates: start: 20070206, end: 20070206
  4. BEVACIZUMAB [Suspect]
     Indication: BREAST CANCER
     Route: 042
     Dates: start: 20070205, end: 20070205
  5. SENOKOT [Concomitant]
     Indication: CONSTIPATION
     Route: 048
     Dates: start: 20070206
  6. ALOXI [Concomitant]
     Indication: PROPHYLAXIS OF NAUSEA AND VOMITING
     Route: 042
     Dates: start: 20070205
  7. ATIVAN [Concomitant]
     Indication: ANXIETY
     Route: 048
     Dates: start: 20070206
  8. ATIVAN [Concomitant]
     Indication: INSOMNIA
     Route: 048
     Dates: start: 20070206
  9. LASIX [Concomitant]
     Indication: DYSPNOEA
     Route: 042
     Dates: start: 20070206
  10. LASIX [Concomitant]
     Indication: OEDEMA
     Route: 042
     Dates: start: 20070206
  11. CARDIZEM [Concomitant]
     Indication: HYPERTENSION
     Route: 048
     Dates: start: 20070101, end: 20070124
  12. CHANTIX [Concomitant]
     Indication: EX-SMOKER
     Route: 048
     Dates: start: 20070131
  13. EMEND [Concomitant]
     Indication: PROPHYLAXIS OF NAUSEA AND VOMITING
     Route: 048
     Dates: start: 20070205
  14. DECADRON [Concomitant]
     Indication: PROPHYLAXIS OF NAUSEA AND VOMITING
     Route: 042
     Dates: start: 20070205
  15. BENADRYL [Concomitant]
     Indication: PROPHYLAXIS OF NAUSEA AND VOMITING
     Route: 042
     Dates: start: 20070205
  16. TYLENOL [Concomitant]
     Indication: PROPHYLACTIC CHEMOTHERAPY
     Route: 048
     Dates: start: 20070205

REACTIONS (4)
  - CAROTID ARTERY OCCLUSION [None]
  - EMBOLIC CEREBRAL INFARCTION [None]
  - MITRAL VALVE DISEASE [None]
  - PULMONARY HYPERTENSION [None]
